FAERS Safety Report 8078348-1 (Version None)
Quarter: 2012Q1

REPORT INFORMATION
  Report Type: 
  Country: None (occurrence: None)
  Receive Date: 20120123
  Receipt Date: 20120109
  Transmission Date: 20120608
  Serious: Yes (Death, Other)
  Sender: FDA-Public Use
  Company Number: JPI-P-010693

PATIENT
  Age: 27 Year
  Sex: Female

DRUGS (10)
  1. XYREM [Suspect]
     Indication: CATAPLEXY
     Dosage: 6;9 GM (3 GM; 4.5 GM, 2 IN 1 D), ORAL
     Route: 048
     Dates: start: 20061221, end: 20100509
  2. XYREM [Suspect]
     Indication: CATAPLEXY
     Dosage: 6;9 GM (3 GM; 4.5 GM, 2 IN 1 D), ORAL
     Route: 048
     Dates: start: 20061011, end: 20061220
  3. FENTANYL [Suspect]
     Indication: DRUG ABUSE
     Dosage: SUBLINGUAL
     Route: 060
     Dates: end: 20100509
  4. UNSPECIFIED DRUGS, MEDICAMENTS, AND BIOLOGICAL SUBSTANCES [Suspect]
     Indication: PRODUCT USED FOR UNKNOWN INDICATION
     Dates: end: 20100509
  5. LORATADINE WITH PSEUDOEPHEDRINE [Concomitant]
  6. OMEPRAZOLE [Concomitant]
  7. MULTIPLE UNSPECIFIED DRUGS [Concomitant]
  8. ACETAMINOPHEN WITH DICHLORALPHENAZONE AND ISOMETHEPTENE [Concomitant]
  9. DICYCLOMINE [Concomitant]
  10. AMPHETAMINE WITH  DEXTROAMPHETAMINE [Concomitant]

REACTIONS (5)
  - STRESS [None]
  - SEBORRHOEA [None]
  - HALLUCINATION [None]
  - ACCIDENTAL DEATH [None]
  - WEIGHT FLUCTUATION [None]
